FAERS Safety Report 9166369 (Version 3)
Quarter: 2013Q2

REPORT INFORMATION
  Report Type: Spontaneous
  Country: US (occurrence: US)
  Receive Date: 20130315
  Receipt Date: 20130520
  Transmission Date: 20140414
  Serious: Yes (Other)
  Sender: FDA-Public Use
  Company Number: US-PFIZER INC-2013086036

PATIENT
  Age: 58 Year
  Sex: Female

DRUGS (7)
  1. XELJANZ [Suspect]
     Indication: RHEUMATOID ARTHRITIS
     Dosage: 5 MG, 2X/DAY
     Route: 048
     Dates: start: 201302
  2. XELJANZ [Suspect]
     Dosage: 5MG, 2X/DAY
     Route: 048
     Dates: start: 201302, end: 2013
  3. PREDNISONE [Concomitant]
     Dosage: 2.5 MG HALF A TABLET
  4. LISINOPRIL [Concomitant]
     Dosage: 40 MG
  5. LORTAB [Concomitant]
     Dosage: 7.5-500 TABLET
  6. ALEVE [Concomitant]
     Dosage: 220 MG
  7. VITAMIN D [Concomitant]
     Dosage: 2000 UNIT TABLET

REACTIONS (7)
  - Joint stiffness [Unknown]
  - Gait disturbance [Unknown]
  - Joint range of motion decreased [Unknown]
  - Joint swelling [Unknown]
  - Fatigue [Not Recovered/Not Resolved]
  - Muscle tightness [Unknown]
  - Oedema peripheral [Unknown]
